FAERS Safety Report 5876541-7 (Version None)
Quarter: 2008Q3

REPORT INFORMATION
  Report Type: 
  Country: None (occurrence: None)
  Receive Date: 20080908
  Receipt Date: 20080908
  Transmission Date: 20090109
  Serious: No
  Sender: FDA-Public Use
  Company Number: None

PATIENT
  Age: 63 Year
  Sex: Female
  Weight: 71.6683 kg

DRUGS (1)
  1. FOSAMAX [Suspect]
     Indication: OSTEOPOROSIS
     Dosage: ONE 70 MG TABLET ONE TABLET EACH WE PO
     Route: 048
     Dates: start: 20070607, end: 20080607

REACTIONS (2)
  - AGEUSIA [None]
  - ANOSMIA [None]
